FAERS Safety Report 23833604 (Version 1)
Quarter: 2024Q2

REPORT INFORMATION
  Report Type: Report from Study
  Country: US (occurrence: US)
  Receive Date: 20240508
  Receipt Date: 20240508
  Transmission Date: 20240717
  Serious: Yes (Other)
  Sender: FDA-Public Use
  Company Number: US-ABBVIE-5751401

PATIENT
  Sex: Female

DRUGS (5)
  1. SKYRIZI [Suspect]
     Active Substance: RISANKIZUMAB-RZAA
     Indication: Crohn^s disease
     Dosage: DOSE 360 MG/ 2.4 ML?INSERT 1 CARTRIDGE INTO ON BODY INJECTOR?WEEK 12
     Route: 058
     Dates: start: 202403
  2. SKYRIZI [Suspect]
     Active Substance: RISANKIZUMAB-RZAA
     Dosage: SKYRIZI 360 MG/ 2.4 ML
     Route: 058
     Dates: start: 20240116, end: 20240116
  3. SKYRIZI [Suspect]
     Active Substance: RISANKIZUMAB-RZAA
     Indication: Crohn^s disease
     Dosage: 600 MG/10ML?WEEK 0
     Route: 042
     Dates: start: 20230928, end: 20230928
  4. SKYRIZI [Suspect]
     Active Substance: RISANKIZUMAB-RZAA
     Indication: Crohn^s disease
     Dosage: 600 MG/10ML?WEEK 4
     Route: 042
     Dates: start: 20231026, end: 20231026
  5. SKYRIZI [Suspect]
     Active Substance: RISANKIZUMAB-RZAA
     Indication: Crohn^s disease
     Dosage: 600 MG/10ML?WEEK 8
     Route: 042
     Dates: start: 20231122, end: 20231122

REACTIONS (1)
  - Loss of consciousness [Unknown]
